FAERS Safety Report 4443476-6 (Version None)
Quarter: 2004Q3

REPORT INFORMATION
  Report Type: 
  Country: None (occurrence: None)
  Receive Date: 20040901
  Receipt Date: 20040819
  Transmission Date: 20050211
  Serious: Yes (Other)
  Sender: FDA-Public Use
  Company Number: 2004UW17614

PATIENT

DRUGS (1)
  1. SEROQUEL [Suspect]
     Dosage: 500 MG PO
     Route: 048

REACTIONS (1)
  - LEUKOPENIA [None]
